FAERS Safety Report 9162757 (Version 1)
Quarter: 2013Q1

REPORT INFORMATION
  Report Type: Spontaneous
  Country: GB (occurrence: GB)
  Receive Date: 20130314
  Receipt Date: 20130314
  Transmission Date: 20140127
  Serious: No
  Sender: FDA-Public Use
  Company Number: GB-ELI_LILLY_AND_COMPANY-GB201210005860

PATIENT
  Age: 55 Year
  Sex: Female

DRUGS (1)
  1. STRATTERA [Suspect]
     Indication: ABNORMAL BEHAVIOUR
     Dosage: UNK UNK, QD

REACTIONS (1)
  - Accidental exposure to product [Recovered/Resolved]
